FAERS Safety Report 17153916 (Version 4)
Quarter: 2020Q1

REPORT INFORMATION
  Report Type: Report from Study
  Country: IL (occurrence: IL)
  Receive Date: 20191213
  Receipt Date: 20200103
  Transmission Date: 20200409
  Serious: Yes (Hospitalization)
  Sender: FDA-Public Use
  Company Number: IL-EISAI MEDICAL RESEARCH-EC-2019-067093

PATIENT
  Age: 70 Year
  Sex: Male
  Weight: 86.3 kg

DRUGS (21)
  1. DEXAMETHASONE. [Concomitant]
     Active Substance: DEXAMETHASONE
     Dates: start: 20190731
  2. PEMBROLIZUMAB. [Suspect]
     Active Substance: PEMBROLIZUMAB
     Indication: NON-SMALL CELL LUNG CANCER
     Route: 041
     Dates: start: 20190801, end: 20191023
  3. CISPLATIN. [Suspect]
     Active Substance: CISPLATIN
     Dosage: 75 MILLIGRAM/SQ. METER
     Route: 041
     Dates: start: 20191003, end: 20191003
  4. PEMETREXED. [Suspect]
     Active Substance: PEMETREXED
     Dosage: 500 MILLIGRAM/SQ. METER
     Route: 041
     Dates: start: 20191112, end: 20191112
  5. ALLOPURINOL. [Concomitant]
     Active Substance: ALLOPURINOL
     Dates: start: 201808
  6. DEXAMETHASONE. [Concomitant]
     Active Substance: DEXAMETHASONE
     Dates: start: 20191112, end: 20191112
  7. CALCIUM [Concomitant]
     Active Substance: CALCIUM
     Dates: start: 20190708
  8. AKYNZEO [Concomitant]
     Active Substance: NETUPITANT\PALONOSETRON HYDROCHLORIDE
     Dates: start: 20191112, end: 20191112
  9. FENTA [Concomitant]
  10. FOLIC ACID. [Concomitant]
     Active Substance: FOLIC ACID
     Dates: start: 20190708
  11. CISPLATIN. [Suspect]
     Active Substance: CISPLATIN
     Indication: NON-SMALL CELL LUNG CANCER
     Dosage: 75 MILLIGRAM/SQ. METER
     Route: 041
     Dates: start: 20190801, end: 20190925
  12. UBIDECARENONE [Concomitant]
     Active Substance: UBIDECARENONE
     Dates: start: 201701
  13. PEMBROLIZUMAB. [Suspect]
     Active Substance: PEMBROLIZUMAB
     Route: 041
     Dates: start: 20191112, end: 20191112
  14. XGEVA [Concomitant]
     Active Substance: DENOSUMAB
     Dates: start: 20190715
  15. ASPIRIN. [Concomitant]
     Active Substance: ASPIRIN
     Dates: start: 200908
  16. MAGNESIUM [Concomitant]
     Active Substance: MAGNESIUM
     Dates: start: 201707
  17. PEMETREXED. [Suspect]
     Active Substance: PEMETREXED
     Indication: NON-SMALL CELL LUNG CANCER
     Dosage: 500 MILLIGRAM/SQ. METER
     Route: 041
     Dates: start: 20190801, end: 20191003
  18. LOSARTAN. [Concomitant]
     Active Substance: LOSARTAN
     Dates: start: 201902
  19. LENVATINIB [Suspect]
     Active Substance: LENVATINIB
     Indication: NON-SMALL CELL LUNG CANCER
     Route: 048
     Dates: start: 20190801, end: 20191023
  20. SODIUM CHLORIDE. [Concomitant]
     Active Substance: SODIUM CHLORIDE
     Dates: start: 20191112, end: 20191112
  21. LENVATINIB [Suspect]
     Active Substance: LENVATINIB
     Route: 048
     Dates: start: 20191112, end: 20191112

REACTIONS (1)
  - Pyrexia [Recovered/Resolved]

NARRATIVE: CASE EVENT DATE: 20191126
